FAERS Safety Report 5514624-1 (Version None)
Quarter: 2007Q4

REPORT INFORMATION
  Report Type: 
  Country: None (occurrence: None)
  Receive Date: 20071113
  Receipt Date: 20071101
  Transmission Date: 20080405
  Serious: Yes (Other)
  Sender: FDA-Public Use
  Company Number: US-PFIZER INC-2007075699

PATIENT
  Sex: Female
  Weight: 83.9 kg

DRUGS (22)
  1. CHANTIX [Suspect]
     Indication: ALCOHOL USE
     Dates: start: 20070701, end: 20070909
  2. NALTREXONE HYDROCHLORIDE [Interacting]
     Route: 051
  3. CALCIUM WITH VITAMIN D [Concomitant]
  4. GLUCOSAMINE W/CHONDROITIN SULFATES [Concomitant]
  5. RANITIDINE [Concomitant]
  6. TYLENOL [Concomitant]
  7. TYLENOL W/ CODEINE NO. 3 [Concomitant]
  8. VITAMIN B COMPLEX CAP [Concomitant]
  9. ASCORBIC ACID [Concomitant]
  10. VITAMIN E [Concomitant]
  11. ELAVIL [Concomitant]
     Route: 048
  12. FLUOXETINE HYDROCHLORIDE [Concomitant]
     Route: 048
  13. LEVOTHYROXINE SODIUM [Concomitant]
     Indication: THYROID DISORDER
     Route: 048
  14. BENICAR HCT [Concomitant]
     Route: 048
  15. CLARINEX [Concomitant]
     Route: 048
  16. CLEOCIN T [Concomitant]
     Route: 048
  17. FLOVENT [Concomitant]
     Route: 055
  18. METHOCARBAMOL [Concomitant]
     Route: 048
  19. NASAREL [Concomitant]
     Route: 055
  20. RELAFEN [Concomitant]
     Route: 048
  21. BENADRYL [Concomitant]
  22. VITAMIN CAP [Concomitant]

REACTIONS (12)
  - ANGER [None]
  - ANXIETY DISORDER [None]
  - AUTOIMMUNE DISORDER [None]
  - BLISTER [None]
  - CONSTIPATION [None]
  - DERMATITIS CONTACT [None]
  - DRUG INTERACTION [None]
  - FRUSTRATION [None]
  - HYPERTENSION [None]
  - HYPOTHYROIDISM [None]
  - INCORRECT DOSE ADMINISTERED [None]
  - WEIGHT INCREASED [None]
